FAERS Safety Report 8525022-0 (Version None)
Quarter: 2012Q3

REPORT INFORMATION
  Report Type: 
  Country: None (occurrence: None)
  Receive Date: 20120720
  Receipt Date: 20120716
  Transmission Date: 20120928
  Serious: Yes (Other)
  Sender: FDA-Public Use
  Company Number: US-BRISTOL-MYERS SQUIBB COMPANY-16677213

PATIENT
  Age: 67 Year
  Sex: Female
  Weight: 87 kg

DRUGS (8)
  1. ZYPREXA [Concomitant]
     Dates: start: 20110525
  2. ATENOLOL [Suspect]
  3. ABILIFY [Suspect]
     Indication: DEPRESSION
     Dosage: 1 TABS,QLTS,INCR:10MG-6MAY04,20MG:08JAN07,30MG09MAY07,5MG:07FEB11.
     Route: 048
     Dates: start: 20040414, end: 20110428
  4. SEROQUEL [Concomitant]
     Dosage: 300-7/5/02,200MG:17JUN02
     Dates: start: 20020220
  5. RESERPINE [Suspect]
     Indication: TARDIVE DYSKINESIA
  6. ABILIFY [Suspect]
     Indication: TARDIVE DYSKINESIA
     Dosage: 1 TABS,QLTS,INCR:10MG-6MAY04,20MG:08JAN07,30MG09MAY07,5MG:07FEB11.
     Route: 048
     Dates: start: 20040414, end: 20110428
  7. RISPERDAL [Concomitant]
     Dosage: INCREASED TO 2MG FROM 21OCT2001
     Dates: start: 20010523, end: 20011027
  8. INVEGA [Concomitant]
     Dates: start: 20120104, end: 20120119

REACTIONS (7)
  - FALL [None]
  - PRURITUS [None]
  - TARDIVE DYSKINESIA [None]
  - PATELLA FRACTURE [None]
  - HUMERUS FRACTURE [None]
  - CONCUSSION [None]
  - HYPOTENSION [None]
